FAERS Safety Report 4744919-0 (Version None)
Quarter: 2005Q3

REPORT INFORMATION
  Report Type: 
  Country: None (occurrence: None)
  Receive Date: 20050811
  Receipt Date: 20050727
  Transmission Date: 20060218
  Serious: Yes (Other)
  Sender: FDA-Public Use
  Company Number: A-US2003-03116

PATIENT
  Age: 78 Year
  Sex: Female
  Weight: 60 kg

DRUGS (28)
  1. TRACLEER [Suspect]
     Indication: PULMONARY HYPERTENSION
     Dosage: SEE IMAGE, ORAL
     Route: 048
     Dates: start: 20020926, end: 20021001
  2. TRACLEER [Suspect]
     Indication: PULMONARY HYPERTENSION
     Dosage: SEE IMAGE, ORAL
     Route: 048
     Dates: start: 20021001, end: 20030618
  3. TRACLEER [Suspect]
     Indication: PULMONARY HYPERTENSION
     Dosage: SEE IMAGE, ORAL
     Route: 048
     Dates: start: 20030707, end: 20030714
  4. TRACLEER [Suspect]
     Indication: PULMONARY HYPERTENSION
     Dosage: SEE IMAGE, ORAL
     Route: 048
     Dates: start: 20030714, end: 20030717
  5. TRACLEER [Suspect]
     Indication: PULMONARY HYPERTENSION
     Dosage: SEE IMAGE, ORAL
     Route: 048
     Dates: start: 20050326, end: 20050429
  6. TENORMIN [Concomitant]
  7. IMDUR [Concomitant]
  8. SYNTHROID [Concomitant]
  9. COUMADIN [Concomitant]
  10. MULTIVITAMINS (ASCORBIC ACID, ERGOCALCIFEROL, FOLIC ACID, NICOTINAMIDE [Concomitant]
  11. AMBIEN [Concomitant]
  12. ALDACTONE [Concomitant]
  13. LOTREL (BENAZEPRIL HYDROCHLORIDE, AMLODIPINE) [Concomitant]
  14. ADVAIR (SALMETEROL XINAFOATE) [Concomitant]
  15. PAXIL [Concomitant]
  16. LASIX [Concomitant]
  17. POTASSIUM CHLORIDE [Concomitant]
  18. PLAVIX [Concomitant]
  19. ASPIRIN [Concomitant]
  20. L-ARGININE [Concomitant]
  21. AVAPRO [Concomitant]
  22. NORVASC [Concomitant]
  23. REMERON [Concomitant]
  24. COENZYME Q10 [Concomitant]
  25. CALCIUM (CALCIUM) [Concomitant]
  26. MAGNESIUM [Concomitant]
  27. AMBIEN [Concomitant]
  28. VITAMIN E [Concomitant]

REACTIONS (5)
  - ALANINE AMINOTRANSFERASE INCREASED [None]
  - ASPARTATE AMINOTRANSFERASE INCREASED [None]
  - BLOOD ALKALINE PHOSPHATASE INCREASED [None]
  - FATIGUE [None]
  - LIVER FUNCTION TEST ABNORMAL [None]
